FAERS Safety Report 6675713-1 (Version None)
Quarter: 2010Q2

REPORT INFORMATION
  Report Type: 
  Country: None (occurrence: None)
  Receive Date: 20100409
  Receipt Date: 20100401
  Transmission Date: 20101027
  Serious: Yes (Hospitalization)
  Sender: FDA-Public Use
  Company Number: PL-ABBOTT-10P-129-0635814-00

PATIENT
  Sex: Female
  Weight: 92 kg

DRUGS (2)
  1. MERIDIA [Suspect]
     Indication: OBESITY
     Route: 048
     Dates: start: 20091001, end: 20091201
  2. METYPRED [Concomitant]
     Indication: SYSTEMIC LUPUS ERYTHEMATOSUS
     Route: 048
     Dates: start: 20040101

REACTIONS (1)
  - PROTEINURIA [None]
